FAERS Safety Report 9675631 (Version 3)
Quarter: 2014Q3

REPORT INFORMATION
  Report Type: Spontaneous
  Country: US (occurrence: None)
  Receive Date: 20131105
  Receipt Date: 20140701
  Transmission Date: 20150326
  Serious: Yes (Hospitalization)
  Sender: FDA-Public Use
  Company Number: 2013-US-002621

PATIENT
  Age: 41 Year
  Sex: Female
  Weight: 81.6 kg

DRUGS (5)
  1. XYREM [Suspect]
     Active Substance: SODIUM OXYBATE
     Indication: NARCOLEPSY
     Route: 048
     Dates: start: 200708, end: 200708
  2. XYREM [Suspect]
     Active Substance: SODIUM OXYBATE
     Indication: SOMNOLENCE
     Route: 048
     Dates: start: 200708, end: 200708
  3. NORVASC [Concomitant]
     Active Substance: AMLODIPINE BESYLATE
  4. ZOLOFT (SETRALINE HYDROCHLORIDE) [Concomitant]
  5. ADDERALL [Suspect]
     Active Substance: AMPHETAMINE ASPARTATE\AMPHETAMINE SULFATE\DEXTROAMPHETAMINE SACCHARATE\DEXTROAMPHETAMINE SULFATE
     Indication: SOMNOLENCE
     Dosage: 30-40MG QD UP TO 60 MG QD
     Route: 048

REACTIONS (12)
  - Prolapse repair [None]
  - Drug dose omission [None]
  - Muscle twitching [None]
  - Hallucination, visual [None]
  - Weight increased [None]
  - Intestinal prolapse [None]
  - Insomnia [None]
  - Anxiety [None]
  - Vaginal prolapse [None]
  - Fatigue [None]
  - Hysterectomy [None]
  - Bladder neck suspension [None]

NARRATIVE: CASE EVENT DATE: 2007
